FAERS Safety Report 4659810-8 (Version None)
Quarter: 2005Q2

REPORT INFORMATION
  Report Type: 
  Country: None (occurrence: None)
  Receive Date: 20050510
  Receipt Date: 20050425
  Transmission Date: 20051028
  Serious: Yes (Life-Threatening, Hospitalization, Other)
  Sender: FDA-Public Use
  Company Number: 213766

PATIENT
  Age: 9 Year
  Sex: Male
  Weight: 26.5 kg

DRUGS (2)
  1. MABTHERA (RITUXIMAB) CONC FOR SOLUTION FOR INFUSION [Suspect]
     Indication: IMMUNODEFICIENCY
     Dosage: 375 ML, 1/WEEK, INTRAVENOUS
     Route: 042
  2. PREDNISONE [Concomitant]

REACTIONS (13)
  - BRAIN OEDEMA [None]
  - COMA [None]
  - DRUG TOXICITY [None]
  - ENCEPHALITIS [None]
  - MASTOID DISORDER [None]
  - METABOLIC ENCEPHALOPATHY [None]
  - RALES [None]
  - REVERSIBLE POSTERIOR LEUKOENCEPHALOPATHY SYNDROME [None]
  - SINUSITIS [None]
  - STATUS EPILEPTICUS [None]
  - TOXIC INDUCED ENCEPHALOPATHY [None]
  - VIRAL INFECTION [None]
  - VOMITING [None]
